FAERS Safety Report 16072690 (Version 2)
Quarter: 2019Q2

REPORT INFORMATION
  Report Type: Report from Study
  Country: US (occurrence: US)
  Receive Date: 20190314
  Receipt Date: 20190423
  Transmission Date: 20190711
  Serious: Yes (Death, Hospitalization)
  Sender: FDA-Public Use
  Company Number: US-BAYER-2019-028650

PATIENT
  Age: 84 Year
  Sex: Male

DRUGS (1)
  1. STIVARGA [Suspect]
     Active Substance: REGORAFENIB
     Indication: COLORECTAL CANCER
     Dosage: 120 MG DAILY FOR 21 DAYS OF 28 DAY CYCLE
     Route: 048
     Dates: start: 20190205, end: 20190225

REACTIONS (10)
  - Cystitis [None]
  - Sepsis [None]
  - Fatigue [None]
  - Death [Fatal]
  - Bacteraemia [None]
  - Headache [Not Recovered/Not Resolved]
  - Back pain [Not Recovered/Not Resolved]
  - Hyperglycaemia [None]
  - Dry mouth [None]
  - Off label use [None]

NARRATIVE: CASE EVENT DATE: 201902
